FAERS Safety Report 10249115 (Version 1)
Quarter: 2014Q2

REPORT INFORMATION
  Report Type: Spontaneous
  Country: FR (occurrence: FR)
  Receive Date: 20140620
  Receipt Date: 20140620
  Transmission Date: 20141212
  Serious: Yes (Hospitalization)
  Sender: FDA-Public Use
  Company Number: PHHY2014FR075645

PATIENT
  Age: 63 Year
  Sex: Male

DRUGS (3)
  1. ZOMETA [Suspect]
     Indication: METASTASES TO BONE
     Dosage: UNK UKN, 6 INJECTIONS
     Dates: start: 200809, end: 200904
  2. PREVISCAN [Concomitant]
     Dosage: UNK UKN, UNK
  3. KARDEGIC [Concomitant]
     Dosage: 75 MG, DAILY

REACTIONS (1)
  - Osteonecrosis [Unknown]
